FAERS Safety Report 15973478 (Version 1)
Quarter: 2019Q1

REPORT INFORMATION
  Report Type: Report from Study
  Country: US (occurrence: US)
  Receive Date: 20190216
  Receipt Date: 20190216
  Transmission Date: 20190418
  Serious: No
  Sender: FDA-Public Use
  Company Number: US-AMAG PHARMACEUTICALS, INC.-AMAG201900160

PATIENT
  Sex: Female
  Weight: 70.75 kg

DRUGS (1)
  1. MAKENA [Suspect]
     Active Substance: HYDROXYPROGESTERONE CAPROATE
     Indication: PREMATURE DELIVERY
     Dosage: 250 MG/ML, WEEKLY
     Route: 058
     Dates: end: 20190104

REACTIONS (5)
  - Pruritus [Unknown]
  - Injection site rash [Unknown]
  - Generalised erythema [Unknown]
  - Pruritus generalised [Unknown]
  - Injection site erythema [Unknown]
